FAERS Safety Report 19310905 (Version 5)
Quarter: 2021Q2

REPORT INFORMATION
  Report Type: Report from Study
  Country: US (occurrence: US)
  Receive Date: 20210526
  Receipt Date: 20210626
  Transmission Date: 20210717
  Serious: Yes (Hospitalization, Other)
  Sender: FDA-Public Use
  Company Number: NVSC2021US116017

PATIENT
  Age: 63 Year
  Sex: Male
  Weight: 96.37 kg

DRUGS (1)
  1. TREPROSTINIL. [Suspect]
     Active Substance: TREPROSTINIL
     Indication: PULMONARY ARTERIAL HYPERTENSION
     Dosage: UNK (18 NG/KG/MIN)
     Route: 042
     Dates: start: 20210129

REACTIONS (7)
  - Sepsis [Unknown]
  - Loss of consciousness [Unknown]
  - Headache [Unknown]
  - Respiratory disorder [Unknown]
  - Weight decreased [Unknown]
  - Abdominal discomfort [Unknown]
  - Pneumonia [Unknown]

NARRATIVE: CASE EVENT DATE: 20210605
